FAERS Safety Report 8334207-8 (Version None)
Quarter: 2012Q2

REPORT INFORMATION
  Report Type: 
  Country: None (occurrence: None)
  Receive Date: 20120503
  Receipt Date: 20120416
  Transmission Date: 20120825
  Serious: Yes (Other)
  Sender: FDA-Public Use
  Company Number: US-GLAXOSMITHKLINE-A0974660A

PATIENT
  Sex: Female

DRUGS (1)
  1. ALBUTEROL [Suspect]
     Indication: ASTHMA
     Route: 055

REACTIONS (5)
  - DRUG INEFFECTIVE [None]
  - CHEST DISCOMFORT [None]
  - ILL-DEFINED DISORDER [None]
  - DRY MOUTH [None]
  - ASTHMA [None]
